FAERS Safety Report 4929395-7 (Version None)
Quarter: 2006Q1

REPORT INFORMATION
  Report Type: 
  Country: None (occurrence: None)
  Receive Date: 20060224
  Receipt Date: 20060216
  Transmission Date: 20060701
  Serious: Yes (Hospitalization)
  Sender: FDA-Public Use
  Company Number: 2006-02-0905

PATIENT
  Age: 3 Year
  Sex: Male
  Weight: 18 kg

DRUGS (7)
  1. CELESTONE [Suspect]
     Indication: RASH VESICULAR
     Dates: start: 20060106, end: 20060107
  2. CLARITHROMYCIN [Concomitant]
  3. JOSACINE [Concomitant]
  4. PRIMALAN [Concomitant]
  5. AUGMENTIN '125' [Concomitant]
  6. MUPIROCIN OINTMENT [Concomitant]
  7. CHLORHEXIDINE GLUCONATE CREAM [Concomitant]

REACTIONS (7)
  - BLISTER [None]
  - DISEASE PROGRESSION [None]
  - LYMPHADENOPATHY [None]
  - PAIN [None]
  - RASH MACULAR [None]
  - RASH PUSTULAR [None]
  - VIRAL INFECTION [None]
